FAERS Safety Report 7866226-X (Version None)
Quarter: 2011Q4

REPORT INFORMATION
  Report Type: 
  Country: None (occurrence: None)
  Receive Date: 20111028
  Receipt Date: 20110513
  Transmission Date: 20120403
  Serious: No
  Sender: FDA-Public Use
  Company Number: US-GLAXOSMITHKLINE-A0927327A

PATIENT
  Age: 64 Year
  Sex: Female

DRUGS (6)
  1. GLIMEPIRIDE [Concomitant]
  2. TRANDOLAPRIL [Concomitant]
  3. EVISTA [Concomitant]
  4. LEXAPRO [Concomitant]
  5. METFORMIN HCL [Concomitant]
  6. ADVAIR DISKUS 100/50 [Suspect]
     Indication: PRODUCT USED FOR UNKNOWN INDICATION
     Dosage: 1PUFF TWICE PER DAY
     Route: 055

REACTIONS (3)
  - PRODUCT QUALITY ISSUE [None]
  - RESPIRATION ABNORMAL [None]
  - COUGH [None]
